FAERS Safety Report 4913042-4 (Version None)
Quarter: 2006Q1

REPORT INFORMATION
  Report Type: 
  Country: None (occurrence: None)
  Receive Date: 20060210
  Receipt Date: 20060127
  Transmission Date: 20060701
  Serious: Yes (Death)
  Sender: FDA-Public Use
  Company Number: L05-USA-03935-04

PATIENT
  Age: 37 Year
  Sex: Male

DRUGS (10)
  1. CITALOPRAM [Suspect]
  2. MORPHINE [Suspect]
  3. DIAZEPAM [Suspect]
  4. CHLORDIAZEPOXIDE [Suspect]
  5. CLONAZEPAM [Suspect]
  6. VALPROIC ACID [Suspect]
  7. QUETIAPINE FUMARATE [Suspect]
  8. ZIPRASIDONE HCL [Suspect]
  9. BENZTROPINE MESYLATE [Suspect]
  10. OLANZAPINE [Suspect]

REACTIONS (3)
  - CARDIAC ARREST [None]
  - INCORRECT DOSE ADMINISTERED [None]
  - RESPIRATORY ARREST [None]
